FAERS Safety Report 19888510 (Version 1)
Quarter: 2021Q3

REPORT INFORMATION
  Report Type: Spontaneous
  Country: US (occurrence: US)
  Receive Date: 20210927
  Receipt Date: 20210927
  Transmission Date: 20211014
  Serious: No
  Sender: FDA-Public Use
  Company Number: US-KVK-TECH, INC-20210100003

PATIENT
  Age: 34 Year
  Sex: Female
  Weight: 104.76 kg

DRUGS (3)
  1. AMBIEN [Concomitant]
     Active Substance: ZOLPIDEM TARTRATE
     Indication: INSOMNIA
  2. OXYCODONE HYDROCHLORIDE TABLETS, USP [Suspect]
     Active Substance: OXYCODONE HYDROCHLORIDE
     Indication: ANALGESIC THERAPY
     Dosage: 20 MILLIGRAM, EVERY 4 HOURS ON AS NEEDED BASIS
     Route: 048
     Dates: start: 20201224, end: 202012
  3. ESTRADIOL. [Concomitant]
     Active Substance: ESTRADIOL
     Indication: UTERINE LEIOMYOMA

REACTIONS (1)
  - Drug ineffective [Unknown]

NARRATIVE: CASE EVENT DATE: 20201224
